FAERS Safety Report 6064430-7 (Version None)
Quarter: 2009Q1

REPORT INFORMATION
  Report Type: 
  Country: None (occurrence: None)
  Receive Date: 20090204
  Receipt Date: 20090129
  Transmission Date: 20090719
  Serious: Yes (Hospitalization, Other)
  Sender: FDA-Public Use
  Company Number: US-BAYER-200814015BCC

PATIENT
  Age: 76 Year
  Sex: Female
  Weight: 54 kg

DRUGS (7)
  1. ASPIRIN [Suspect]
     Indication: ISCHAEMIC HEART DISEASE PROPHYLAXIS
     Dosage: TOTAL DAILY DOSE: 81 MG  UNIT DOSE: 81 MG
     Dates: start: 20041001
  2. LOPRESSOR [Concomitant]
     Dosage: TOTAL DAILY DOSE: 100 MG  UNIT DOSE: 100 MG
  3. PREMARIN [Concomitant]
     Dosage: TOTAL DAILY DOSE: 0.625 MG  UNIT DOSE: 0.625 MG
  4. PREVACID [Concomitant]
  5. COQ10 [Concomitant]
  6. FLUCONAZOLE [Concomitant]
     Dosage: TOTAL DAILY DOSE: 100 MG
  7. VOLTAREN-XR [Concomitant]

REACTIONS (2)
  - GASTRIC ULCER HAEMORRHAGE [None]
  - HAEMATOCHEZIA [None]
